FAERS Safety Report 4433648-9 (Version None)
Quarter: 2004Q3

REPORT INFORMATION
  Report Type: 
  Country: None (occurrence: None)
  Receive Date: 20040824
  Receipt Date: 20040824
  Transmission Date: 20050211
  Serious: Yes (Other)
  Sender: FDA-Public Use
  Company Number: None

PATIENT
  Age: 71 Year
  Sex: Female
  Weight: 72.6 kg

DRUGS (4)
  1. ANGIOMAX (BIVALITUDIN) [Suspect]
     Indication: CORONARY ANGIOPLASTY
     Dosage: 11.3 ML BOLUS AND INFUSION 250/50 ML @ 26 ML/HR
     Route: 040
     Dates: start: 20040512
  2. ANGIOMAX (BIVALITUDIN) [Suspect]
     Indication: STENT PLACEMENT
     Dosage: 11.3 ML BOLUS AND INFUSION 250/50 ML @ 26 ML/HR
     Route: 040
     Dates: start: 20040512
  3. ASPIRIN [Concomitant]
  4. PLAVIX [Concomitant]

REACTIONS (5)
  - FEELING ABNORMAL [None]
  - HYPERHIDROSIS [None]
  - HYPOTENSION [None]
  - RETROPERITONEAL HAEMATOMA [None]
  - SYNCOPE [None]
